FAERS Safety Report 5376940-6 (Version None)
Quarter: 2007Q3

REPORT INFORMATION
  Report Type: 
  Country: None (occurrence: None)
  Receive Date: 20070703
  Receipt Date: 20070619
  Transmission Date: 20080115
  Serious: Yes (Other)
  Sender: FDA-Public Use
  Company Number: PHBS2007BR10372

PATIENT
  Age: 33 Year
  Sex: Female
  Weight: 63 kg

DRUGS (1)
  1. METHERGINE [Suspect]
     Indication: HAEMORRHAGE
     Dosage: 0.125 MG, ONCE/SINGLE
     Dates: start: 20070616, end: 20070616

REACTIONS (5)
  - ANAEMIA [None]
  - HEADACHE [None]
  - INFLUENZA [None]
  - MENORRHAGIA [None]
  - VOMITING [None]
